FAERS Safety Report 7216409-7 (Version None)
Quarter: 2011Q1

REPORT INFORMATION
  Report Type: 
  Country: None (occurrence: None)
  Receive Date: 20110107
  Receipt Date: 20110104
  Transmission Date: 20110831
  Serious: No
  Sender: FDA-Public Use
  Company Number: US-ROXANE LABORATORIES, INC.-2011-RO-00020RO

PATIENT

DRUGS (1)
  1. RAMIPRIL [Suspect]

REACTIONS (1)
  - URINE ODOUR ABNORMAL [None]
